FAERS Safety Report 5279464-X (Version None)
Quarter: 2007Q1

REPORT INFORMATION
  Report Type: 
  Country: None (occurrence: None)
  Receive Date: 20070328
  Receipt Date: 20070320
  Transmission Date: 20070707
  Serious: Yes (Death, Hospitalization)
  Sender: FDA-Public Use
  Company Number: US-PFIZER INC-2006125726

PATIENT
  Sex: Male

DRUGS (2)
  1. CELEBREX [Suspect]
     Indication: PAIN
     Dates: start: 20041004, end: 20050101
  2. VIOXX [Suspect]
     Dates: start: 20021118, end: 20041001

REACTIONS (1)
  - CEREBROVASCULAR ACCIDENT [None]
